FAERS Safety Report 12293552 (Version 1)
Quarter: 2016Q2

REPORT INFORMATION
  Report Type: Other
  Country: None (occurrence: US)
  Receive Date: 20160421
  Receipt Date: 20160421
  Transmission Date: 20160815
  Serious: Yes (Hospitalization, Other)
  Sender: FDA-Public Use
  Company Number: US-ALK-ABELLO A/S-1050854

PATIENT
  Age: 47 Year
  Sex: Male

DRUGS (3)
  1. HONEY BEE VENOM [Suspect]
     Active Substance: APIS MELLIFERA VENOM
     Route: 058
  2. OMALIZUMAB [Concomitant]
     Active Substance: OMALIZUMAB
  3. VENOMS, MIXED VESPID VENOM PROTEIN [Suspect]
     Active Substance: DOLICHOVESPULA ARENARIA VENOM PROTEIN\ DOLICHOVESPULA MACULATA VENOM PROTEIN\ VESPULA MACULIFRONS VENOM PROTEIN
     Route: 058

REACTIONS (2)
  - Anaphylactic reaction [None]
  - Hypersensitivity [None]
